FAERS Safety Report 6695931-6 (Version None)
Quarter: 2010Q2

REPORT INFORMATION
  Report Type: 
  Country: None (occurrence: None)
  Receive Date: 20100426
  Receipt Date: 20100420
  Transmission Date: 20101027
  Serious: Yes (Death)
  Sender: FDA-Public Use
  Company Number: US-SANOFI-AVENTIS-2009SA003775

PATIENT
  Age: 67 Year
  Sex: Female
  Weight: 63.49 kg

DRUGS (22)
  1. PLAVIX [Suspect]
     Route: 048
     Dates: start: 20091114, end: 20091115
  2. ROPIVACAINE HYDROCHLORIDE [Concomitant]
     Route: 008
     Dates: start: 20091111
  3. TYLENOL-500 [Concomitant]
     Indication: HEADACHE
     Route: 065
     Dates: start: 20091115, end: 20091115
  4. TYLENOL-500 [Concomitant]
     Route: 065
     Dates: start: 20091115, end: 20091115
  5. ALBUTEROL [Concomitant]
     Dosage: DOSE:6 PUFF(S)
     Route: 055
     Dates: start: 20091115, end: 20091116
  6. HEPARIN [Concomitant]
     Dosage: DOSE:5000 UNIT(S)
     Route: 058
     Dates: start: 20091113, end: 20091115
  7. HYDRALAZINE HCL [Concomitant]
     Route: 051
     Dates: start: 20091115, end: 20091115
  8. LABETALOL HCL [Concomitant]
     Dosage: Q4HRS PRN SYSTOLIC BLOOD PRESSURE GREATER THAN 200
     Route: 051
     Dates: start: 20091115, end: 20091116
  9. LABETALOL HCL [Concomitant]
     Route: 051
     Dates: start: 20091115, end: 20091115
  10. LABETALOL HCL [Concomitant]
     Route: 051
     Dates: start: 20091115, end: 20091115
  11. METOPROLOL TARTRATE [Concomitant]
     Route: 051
     Dates: start: 20091114, end: 20091114
  12. METOPROLOL TARTRATE [Concomitant]
     Route: 048
     Dates: start: 20091113, end: 20091113
  13. VERSED [Concomitant]
     Route: 051
     Dates: start: 20091115, end: 20091115
  14. VERSED [Concomitant]
     Dosage: Q2H PRN
     Route: 051
     Dates: start: 20091115, end: 20091116
  15. MORPHINE [Concomitant]
     Dosage: Q3H PRN
     Route: 051
     Dates: start: 20091113, end: 20091115
  16. MORPHINE [Concomitant]
     Dosage: 100MG/100NS IV TITRATE PRN
     Route: 051
     Dates: start: 20091116
  17. PROTONIX [Concomitant]
     Route: 065
     Dates: start: 20091113, end: 20091115
  18. POTASSIUM [Concomitant]
     Dosage: 20MEQ PER 100ML IVPB Q2H
     Route: 051
     Dates: start: 20091115
  19. ZOCOR [Concomitant]
     Route: 065
     Dates: start: 20091114, end: 20091115
  20. HYDROCHLOROTHIAZIDE [Concomitant]
     Dates: start: 20091113, end: 20091113
  21. TORADOL [Concomitant]
     Route: 051
     Dates: start: 20091113, end: 20091113
  22. VALSARTAN [Concomitant]
     Dates: start: 20091113, end: 20091113

REACTIONS (1)
  - CEREBRAL INFARCTION [None]
